FAERS Safety Report 9880675 (Version 1)
Quarter: 2014Q1

REPORT INFORMATION
  Report Type: Spontaneous
  Country: US (occurrence: None)
  Receive Date: 20140206
  Receipt Date: 20140206
  Transmission Date: 20141002
  Serious: Yes (Other)
  Sender: FDA-Public Use
  Company Number: None

PATIENT
  Age: 58 Year
  Sex: Male
  Weight: 61.8 kg

DRUGS (6)
  1. MIDAZOLAM [Suspect]
     Indication: SEDATION
     Route: 042
     Dates: start: 20131120
  2. METHADONE [Concomitant]
  3. DUAL VS. QUAD ASUNAPREVIR [Concomitant]
  4. DUAL VS. QUAD DACLATASVIR [Concomitant]
  5. PEGINTERFERON ALFA 2A [Concomitant]
  6. RIBAVIRIN [Concomitant]

REACTIONS (3)
  - Agitation [None]
  - Delirium [None]
  - Injection site rash [None]
